FAERS Safety Report 17507683 (Version 2)
Quarter: 2020Q2

REPORT INFORMATION
  Report Type: Report from Study
  Country: CA (occurrence: CA)
  Receive Date: 20200305
  Receipt Date: 20200526
  Transmission Date: 20200713
  Serious: Yes (Other)
  Sender: FDA-Public Use
  Company Number: CA-SAMSUNG BIOEPIS-SB-2020-07480

PATIENT
  Sex: Male
  Weight: 75.8 kg

DRUGS (1)
  1. RENFLEXIS [Suspect]
     Active Substance: INFLIXIMAB-ABDA
     Indication: CROHN^S DISEASE
     Route: 042
     Dates: start: 20191126

REACTIONS (5)
  - Infusion site pain [Unknown]
  - Infusion site extravasation [Unknown]
  - Feeling cold [Unknown]
  - Product use issue [Unknown]
  - Infusion site swelling [Unknown]
